FAERS Safety Report 25877178 (Version 1)
Quarter: 2025Q4

REPORT INFORMATION
  Report Type: Spontaneous
  Country: EU (occurrence: EU)
  Receive Date: 20251003
  Receipt Date: 20251003
  Transmission Date: 20260118
  Serious: Yes (Other)
  Sender: TEVA
  Company Number: None

PATIENT
  Age: 75 Year
  Sex: Male
  Weight: 75 kg

DRUGS (3)
  1. LOSARTAN [Suspect]
     Active Substance: LOSARTAN
     Indication: Product used for unknown indication
     Dosage: 100 MG (MILLIGRAM), TABLET FO / BRAND NAME NOT SPECIFIED
     Route: 048
     Dates: start: 20130101
  2. METOPROLOL [Concomitant]
     Active Substance: METOPROLOL
     Indication: Product used for unknown indication
     Dosage: BRAND NAME NOT SPECIFIED
     Route: 048
  3. ASPIRIN [Concomitant]
     Active Substance: ASPIRIN
     Indication: Product used for unknown indication
     Dosage: BRAND NAME NOT SPECIFIED
     Route: 065

REACTIONS (1)
  - Renal impairment [Recovering/Resolving]
